FAERS Safety Report 9845579 (Version 1)
Quarter: 2013Q4

REPORT INFORMATION
  Report Type: Spontaneous
  Country: US (occurrence: None)
  Receive Date: 20131219
  Receipt Date: 20131219
  Transmission Date: 20140711
  Serious: Yes (Other)
  Sender: FDA-Public Use
  Company Number: 163-20785-13092359

PATIENT
  Age: 61 Year
  Sex: Female

DRUGS (2)
  1. THALOMID [Suspect]
     Indication: PLASMA CELL MYELOMA
     Dosage: TEMPORARILY INTERRUPTED
     Route: 048
     Dates: start: 201208
  2. NEUPOGEN(FILGRASTIM)(UNKNOWN) [Concomitant]

REACTIONS (2)
  - Convulsion [None]
  - Fatigue [None]
